FAERS Safety Report 5340968-2 (Version None)
Quarter: 2007Q2

REPORT INFORMATION
  Report Type: 
  Country: None (occurrence: None)
  Receive Date: 20070405
  Receipt Date: 20070123
  Transmission Date: 20071010
  Serious: No
  Sender: FDA-Public Use
  Company Number: US200701004496

PATIENT
  Age: 62 Year
  Sex: Male

DRUGS (2)
  1. CYMBALTA [Suspect]
     Indication: BIPOLAR DISORDER
     Dosage: 90 MG, DAILY (1/D); ORAL
     Route: 048
     Dates: start: 20060101
  2. LAMICTAL [Concomitant]

REACTIONS (1)
  - NEUROGENIC BLADDER [None]
